FAERS Safety Report 6853454-5 (Version None)
Quarter: 2010Q3

REPORT INFORMATION
  Report Type: 
  Country: None (occurrence: None)
  Receive Date: 20100717
  Receipt Date: 20071207
  Transmission Date: 20110219
  Serious: No
  Sender: FDA-Public Use
  Company Number: US-PFIZER INC-2007104596

PATIENT
  Sex: Female
  Weight: 68.181 kg

DRUGS (7)
  1. CHANTIX [Suspect]
     Indication: SMOKING CESSATION THERAPY
     Dates: start: 20071206
  2. ALL OTHER THERAPEUTIC PRODUCTS [Interacting]
  3. METHADONE HCL [Concomitant]
  4. SOMA [Concomitant]
  5. LORTAB [Concomitant]
  6. ALBUTEROL [Concomitant]
     Indication: EMPHYSEMA
     Route: 055
  7. ALBUTEROL [Concomitant]
     Indication: PULMONARY CONGESTION

REACTIONS (4)
  - ADVERSE DRUG REACTION [None]
  - DISCOMFORT [None]
  - DRUG INTERACTION [None]
  - STRESS [None]
